FAERS Safety Report 8881232 (Version 2)
Quarter: 2013Q1

REPORT INFORMATION
  Report Type: Spontaneous
  Country: FR (occurrence: FR)
  Receive Date: 20121031
  Receipt Date: 20130307
  Transmission Date: 20140127
  Serious: No
  Sender: FDA-Public Use
  Company Number: FR-ASTRAZENECA-2012SE81169

PATIENT
  Age: 1935 Week
  Sex: Female
  Weight: 67 kg

DRUGS (5)
  1. XEROQUEL [Suspect]
     Indication: SCHIZOPHRENIA
     Route: 048
     Dates: start: 201209
  2. XEROQUEL [Suspect]
     Indication: SCHIZOPHRENIA
     Route: 048
  3. THERALENE [Concomitant]
  4. PARKINANE [Concomitant]
  5. NOCTAMIDE [Concomitant]

REACTIONS (1)
  - Inflammation [Recovered/Resolved]
